FAERS Safety Report 7091291-X (Version None)
Quarter: 2010Q4

REPORT INFORMATION
  Report Type: 
  Country: None (occurrence: None)
  Receive Date: 20101105
  Receipt Date: 20101105
  Transmission Date: 20110411
  Serious: Yes (Hospitalization)
  Sender: FDA-Public Use
  Company Number: None

PATIENT
  Age: 75 Year
  Sex: Male

DRUGS (2)
  1. DOXORUBICIN HCL [Suspect]
     Indication: NEOPLASM MALIGNANT
     Dosage: IV
     Route: 042
  2. BORTEZOMIB [Suspect]
     Indication: NEOPLASM MALIGNANT
     Dosage: IV
     Route: 042

REACTIONS (4)
  - DECREASED APPETITE [None]
  - DIARRHOEA [None]
  - DIZZINESS POSTURAL [None]
  - SYNCOPE [None]
